FAERS Safety Report 8880964 (Version 2)
Quarter: 2012Q4

REPORT INFORMATION
  Report Type: 
  Country: US (occurrence: US)
  Receive Date: 20121101
  Receipt Date: 20121128
  Transmission Date: 20130627
  Serious: Yes (Other)
  Sender: FDA-Public Use
  Company Number: US-ASTRAZENECA-2012SE75949

PATIENT
  Age: 76 Year
  Sex: Female
  Weight: 62.4 kg

DRUGS (8)
  1. BRILINTA [Suspect]
     Indication: ACUTE CORONARY SYNDROME
     Route: 048
     Dates: start: 20120913
  2. LISINOPRIL [Suspect]
     Route: 048
  3. METOPROLOL SUCCINATE [Suspect]
     Indication: MYOCARDIAL INFARCTION
     Route: 048
     Dates: start: 20120907
  4. ASA [Suspect]
     Dosage: ASPIRIN 81 MG DAILY
  5. ASA [Suspect]
  6. PLAVIX [Suspect]
     Route: 065
  7. LIPITOR [Concomitant]
  8. INTEGRILLIN [Concomitant]

REACTIONS (2)
  - Palmar erythema [Unknown]
  - Angioedema [Unknown]
